FAERS Safety Report 6807699-0 (Version None)
Quarter: 2010Q2

REPORT INFORMATION
  Report Type: 
  Country: None (occurrence: None)
  Receive Date: 20100629
  Receipt Date: 20081103
  Transmission Date: 20101027
  Serious: No
  Sender: FDA-Public Use
  Company Number: US-PFIZER INC-2008092704

PATIENT
  Sex: Female

DRUGS (2)
  1. XANAX [Suspect]
     Indication: ANXIETY
     Dates: start: 20080929
  2. LOTEMAX [Interacting]
     Indication: CONJUNCTIVITIS
     Dates: start: 20080929

REACTIONS (2)
  - DRUG INTERACTION [None]
  - INSOMNIA [None]
